FAERS Safety Report 4322769-7 (Version None)
Quarter: 2004Q1

REPORT INFORMATION
  Report Type: 
  Country: None (occurrence: None)
  Receive Date: 20040324
  Receipt Date: 20040226
  Transmission Date: 20041129
  Serious: Yes (Hospitalization)
  Sender: FDA-Public Use
  Company Number: FR-ROCHE-359893

PATIENT
  Age: 46 Year
  Sex: Female
  Weight: 52 kg

DRUGS (5)
  1. PEG-INTERFERON ALFA 2A (RO 25-8310) [Suspect]
     Route: 058
     Dates: start: 20030124, end: 20030825
  2. RIBAVIRIN [Suspect]
     Route: 048
     Dates: start: 20030124, end: 20030825
  3. REBETOL [Concomitant]
     Dates: start: 20030826, end: 20031215
  4. SERESTA [Concomitant]
     Dates: start: 20030310
  5. MEPRONIZINE [Concomitant]
     Dates: start: 20030302

REACTIONS (5)
  - ALANINE AMINOTRANSFERASE INCREASED [None]
  - EPILEPSY [None]
  - LYMPHADENOPATHY [None]
  - PANIC ATTACK [None]
  - THYROID NEOPLASM [None]
